FAERS Safety Report 22699193 (Version 6)
Quarter: 2024Q1

REPORT INFORMATION
  Report Type: Spontaneous
  Country: IT (occurrence: IT)
  Receive Date: 20230713
  Receipt Date: 20240210
  Transmission Date: 20240409
  Serious: Yes (Death, Congenital Anomaly, Other)
  Sender: FDA-Public Use
  Company Number: IT-GILEAD-2023-0633881

PATIENT
  Sex: Female

DRUGS (9)
  1. EMTRICITABINE\TENOFOVIR DISOPROXIL FUMARATE [Suspect]
     Active Substance: EMTRICITABINE\TENOFOVIR DISOPROXIL FUMARATE
     Indication: HIV infection
     Dosage: UNK
     Route: 064
  2. TENOFOVIR DISOPROXIL [Suspect]
     Active Substance: TENOFOVIR DISOPROXIL
     Indication: Product used for unknown indication
     Dosage: UNK
     Route: 064
  3. DOLUTEGRAVIR [Suspect]
     Active Substance: DOLUTEGRAVIR
     Indication: HIV infection
     Dosage: UNK
     Route: 064
  4. DOLUTEGRAVIR\EMTRICITABINE\TENOFOVIR ALAFENAMIDE [Suspect]
     Active Substance: DOLUTEGRAVIR\EMTRICITABINE\TENOFOVIR ALAFENAMIDE
     Indication: HIV infection
     Dosage: UNK
     Route: 064
  5. EMTRICITABINE [Suspect]
     Active Substance: EMTRICITABINE
     Indication: HIV infection
     Dosage: UNK
     Route: 064
  6. PREZCOBIX [Suspect]
     Active Substance: COBICISTAT\DARUNAVIR ETHANOLATE
     Indication: Product used for unknown indication
     Dosage: UNK
     Route: 064
  7. COBICISTAT\DARUNAVIR ETHANOLATE [Suspect]
     Active Substance: COBICISTAT\DARUNAVIR ETHANOLATE
     Indication: HIV infection
     Dosage: UNK
     Route: 065
  8. TENOFOVIR [Suspect]
     Active Substance: TENOFOVIR
     Indication: HIV infection
     Dosage: UNK
     Route: 064
  9. VEMLIDY [Suspect]
     Active Substance: TENOFOVIR ALAFENAMIDE FUMARATE
     Indication: HIV infection
     Dosage: UNK
     Route: 065

REACTIONS (13)
  - Death [Fatal]
  - Foetal death [Fatal]
  - Cardiovascular disorder [Unknown]
  - Dyslipidaemia [Unknown]
  - Fat redistribution [Unknown]
  - Adverse drug reaction [Unknown]
  - Virologic failure [Unknown]
  - Osteoporosis [Unknown]
  - Nephropathy toxic [Unknown]
  - Neurotoxicity [Unknown]
  - Renal disorder [Unknown]
  - Nervous system disorder [Unknown]
  - Foetal exposure during pregnancy [Recovered/Resolved]
